FAERS Safety Report 7245989-0 (Version None)
Quarter: 2011Q1

REPORT INFORMATION
  Report Type: 
  Country: None (occurrence: None)
  Receive Date: 20110126
  Receipt Date: 20110113
  Transmission Date: 20110831
  Serious: Yes (Life-Threatening, Hospitalization)
  Sender: FDA-Public Use
  Company Number: DE-ELI_LILLY_AND_COMPANY-DE201101000848

PATIENT
  Sex: Male
  Weight: 106 kg

DRUGS (4)
  1. GEMZAR [Suspect]
     Dosage: 2150 MG, OVER 30 MINUTES
     Route: 042
     Dates: start: 20101228
  2. DEXAMETHASONE [Concomitant]
     Indication: NAUSEA
     Dosage: 8 MG, UNK
     Route: 042
     Dates: start: 20101228
  3. GEMZAR [Suspect]
     Indication: PANCREATIC CARCINOMA
     Dosage: 1000 MG/M2, UNK
     Route: 042
     Dates: start: 20100801, end: 20101228
  4. TARCEVA [Concomitant]

REACTIONS (8)
  - CHILLS [None]
  - RENAL FAILURE [None]
  - THROMBOTIC THROMBOCYTOPENIC PURPURA [None]
  - MICROANGIOPATHIC HAEMOLYTIC ANAEMIA [None]
  - HYPERTONIA [None]
  - COOMBS NEGATIVE HAEMOLYTIC ANAEMIA [None]
  - THROMBOCYTOPENIA [None]
  - ANAEMIA [None]
